FAERS Safety Report 9359230 (Version 1)
Quarter: 2013Q2

REPORT INFORMATION
  Report Type: Spontaneous
  Country: US (occurrence: US)
  Receive Date: 20130620
  Receipt Date: 20130620
  Transmission Date: 20140414
  Serious: Yes (Other)
  Sender: FDA-Public Use
  Company Number: US-MERCK-1306USA008255

PATIENT
  Sex: Female

DRUGS (3)
  1. FOSAMAX [Suspect]
     Dosage: UNK
     Route: 048
     Dates: start: 1998, end: 200302
  2. FOSAMAX [Suspect]
     Dosage: UNK
     Route: 048
     Dates: start: 200705, end: 20100617
  3. ACTONEL [Suspect]
     Dosage: UNK
     Dates: start: 200302, end: 200705

REACTIONS (1)
  - Femur fracture [Unknown]
